FAERS Safety Report 13367607 (Version 1)
Quarter: 2017Q1

REPORT INFORMATION
  Report Type: Spontaneous
  Country: US (occurrence: US)
  Receive Date: 20170323
  Receipt Date: 20170323
  Transmission Date: 20170429
  Serious: Yes (Life-Threatening, Hospitalization)
  Sender: FDA-Public Use
  Company Number: None

PATIENT
  Age: 28 Year
  Sex: Female
  Weight: 61.2 kg

DRUGS (1)
  1. LEVAQUIN [Suspect]
     Active Substance: LEVOFLOXACIN
     Indication: KIDNEY INFECTION
     Route: 048
     Dates: start: 20161114, end: 20161114

REACTIONS (14)
  - Depression [None]
  - Myalgia [None]
  - Insomnia [None]
  - Fatigue [None]
  - Mobility decreased [None]
  - Neuralgia [None]
  - Obstructive airways disorder [None]
  - Lethargy [None]
  - Dyspnoea [None]
  - Depressed level of consciousness [None]
  - Personality change [None]
  - Visual impairment [None]
  - Nausea [None]
  - Anxiety [None]

NARRATIVE: CASE EVENT DATE: 20161114
